FAERS Safety Report 8435911-3 (Version None)
Quarter: 2012Q2

REPORT INFORMATION
  Report Type: 
  Country: None (occurrence: None)
  Receive Date: 20120608
  Receipt Date: 20120608
  Transmission Date: 20120825
  Serious: Yes (Hospitalization)
  Sender: FDA-Public Use
  Company Number: None

PATIENT
  Sex: Female
  Weight: 53 kg

DRUGS (2)
  1. CARBOPLATIN [Suspect]
     Dosage: 417 MG
     Dates: end: 20120322
  2. TAXOL [Suspect]
     Dosage: 244 MG
     Dates: end: 20120330

REACTIONS (8)
  - VOMITING [None]
  - SMALL INTESTINAL OBSTRUCTION [None]
  - NAUSEA [None]
  - GASTROENTERITIS VIRAL [None]
  - FATIGUE [None]
  - ANAEMIA [None]
  - RECTAL HAEMORRHAGE [None]
  - ASTHENIA [None]
